FAERS Safety Report 23462630 (Version 1)
Quarter: 2024Q1

REPORT INFORMATION
  Report Type: Spontaneous
  Country: US (occurrence: None)
  Receive Date: 20240131
  Receipt Date: 20240131
  Transmission Date: 20240410
  Serious: Yes (Hospitalization)
  Sender: FDA-Public Use
  Company Number: None

PATIENT
  Sex: Female

DRUGS (1)
  1. ENTECAVIR [Suspect]
     Active Substance: ENTECAVIR
     Indication: Acute hepatitis B
     Dosage: OTHER FREQUENCY : EVERY 7DAYS ON SUN;?
     Route: 048
     Dates: start: 202208

REACTIONS (1)
  - Anaemia [None]
